FAERS Safety Report 4807583-8 (Version None)
Quarter: 2005Q4

REPORT INFORMATION
  Report Type: 
  Country: None (occurrence: None)
  Receive Date: 20051024
  Receipt Date: 20050815
  Transmission Date: 20060501
  Serious: Yes (Hospitalization)
  Sender: FDA-Public Use
  Company Number: JP-SANOFI-SYNTHELABO-F01200501557

PATIENT
  Age: 68 Year
  Sex: Male
  Weight: 56 kg

DRUGS (3)
  1. OXALIPLATIN [Suspect]
     Indication: COLON CANCER
     Dosage: 135.2MG/BODY=100MG/M2 AS INFUSION ON DAYS 1 AND 2
     Route: 042
     Dates: start: 20050526, end: 20050526
  2. FLUOROURACIL [Suspect]
     Indication: COLON CANCER
     Dosage: 636MG/BODY=400MG/M2 IN BOLUS THEN 954MG/BODY=600MG/M2 AS INFUSION ON DAYS 1 AND 2
     Route: 042
     Dates: start: 20050526, end: 20050527
  3. CALCIUM LEVOFOLINATE [Suspect]
     Indication: COLON CANCER
     Dosage: 159MG/BODY=100MG/M2 AS INFUSION ON DAYS 1 AND 2
     Route: 042
     Dates: start: 20050526, end: 20050527

REACTIONS (1)
  - URINARY RETENTION [None]
